FAERS Safety Report 6304828-2 (Version None)
Quarter: 2009Q3

REPORT INFORMATION
  Report Type: 
  Country: None (occurrence: None)
  Receive Date: 20090811
  Receipt Date: 20090331
  Transmission Date: 20100115
  Serious: Yes (Other)
  Sender: FDA-Public Use
  Company Number: PHHO2009FR02577

PATIENT
  Sex: Female

DRUGS (2)
  1. RAD 666 RAD+TAB [Suspect]
     Indication: BREAST CANCER METASTATIC
     Dosage: 10 MG / DAY
     Route: 048
     Dates: start: 20080818, end: 20090217
  2. TAMOXIFEN CITRATE [Suspect]
     Indication: BREAST CANCER METASTATIC
     Dosage: 20 MG / DAY
     Dates: start: 20080818, end: 20090217

REACTIONS (2)
  - EPISTAXIS [None]
  - VENA CAVA THROMBOSIS [None]
